FAERS Safety Report 5683844-8 (Version None)
Quarter: 2008Q1

REPORT INFORMATION
  Report Type: 
  Country: None (occurrence: None)
  Receive Date: 20080328
  Receipt Date: 20080320
  Transmission Date: 20080703
  Serious: Yes (Hospitalization)
  Sender: FDA-Public Use
  Company Number: US-NOVOPROD-273329

PATIENT
  Sex: Female
  Weight: 235 kg

DRUGS (5)
  1. NOVOLOG [Suspect]
     Indication: INSULIN-REQUIRING TYPE 2 DIABETES MELLITUS
     Dosage: UNK IU, QD SLIDING SCALE
     Route: 058
     Dates: start: 20040101, end: 20080107
  2. NOVOLOG [Suspect]
     Dosage: UNK IU, QD SLIDING SCALE
     Route: 058
     Dates: start: 20080121
  3. LANTUS [Suspect]
     Indication: INSULIN-REQUIRING TYPE 2 DIABETES MELLITUS
     Dosage: 60 IU, QD
     Route: 058
     Dates: start: 20060101, end: 20080107
  4. LANTUS [Suspect]
     Dosage: 85 IU, QD
     Route: 058
     Dates: start: 20080121
  5. METOPROLOL TARTRATE [Concomitant]
     Dosage: 100 MG, BID

REACTIONS (4)
  - BLOOD GLUCOSE INCREASED [None]
  - HEART RATE IRREGULAR [None]
  - MYOCARDIAL INFARCTION [None]
  - SWELLING [None]
